FAERS Safety Report 17576558 (Version 2)
Quarter: 2020Q2

REPORT INFORMATION
  Report Type: Spontaneous
  Country: US (occurrence: US)
  Receive Date: 20200324
  Receipt Date: 20200622
  Transmission Date: 20200713
  Serious: No
  Sender: FDA-Public Use
  Company Number: US-ACORDA-ACO_163084_2019

PATIENT
  Sex: Female

DRUGS (2)
  1. INBRIJA [Suspect]
     Active Substance: LEVODOPA
     Indication: ON AND OFF PHENOMENON
  2. INBRIJA [Suspect]
     Active Substance: LEVODOPA
     Indication: PARKINSON^S DISEASE
     Dosage: AS NEEDED, 2-3 TIMES DAILY
     Route: 065

REACTIONS (8)
  - Concussion [Unknown]
  - Device use issue [Unknown]
  - Fall [Unknown]
  - Head injury [Unknown]
  - Cough [Unknown]
  - Therapy interrupted [Unknown]
  - Post-traumatic neck syndrome [Unknown]
  - Nausea [Unknown]
